FAERS Safety Report 24770503 (Version 1)
Quarter: 2024Q4

REPORT INFORMATION
  Report Type: Spontaneous
  Country: CZ (occurrence: CZ)
  Receive Date: 20241224
  Receipt Date: 20241224
  Transmission Date: 20250115
  Serious: Yes (Other)
  Sender: RANBAXY
  Company Number: CZ-SUN PHARMACEUTICAL INDUSTRIES LTD-2024R1-486134

PATIENT
  Age: 10 Year
  Sex: Female
  Weight: 37 kg

DRUGS (2)
  1. KETOCONAZOLE [Suspect]
     Active Substance: KETOCONAZOLE
     Indication: Hyperadrenocorticism
     Dosage: 300 MILLIGRAM, DAILY
     Route: 065
  2. KETOCONAZOLE [Suspect]
     Active Substance: KETOCONAZOLE
     Dosage: 400 MILLIGRAM, DAILY
     Route: 065

REACTIONS (3)
  - Therapeutic response decreased [Unknown]
  - Adrenal insufficiency [Recovering/Resolving]
  - COVID-19 [Unknown]
